FAERS Safety Report 7028651-9 (Version None)
Quarter: 2010Q4

REPORT INFORMATION
  Report Type: 
  Country: None (occurrence: None)
  Receive Date: 20101001
  Receipt Date: 20101001
  Transmission Date: 20110411
  Serious: Yes (Hospitalization)
  Sender: FDA-Public Use
  Company Number: None

PATIENT
  Age: 68 Year
  Sex: Female
  Weight: 111.6 kg

DRUGS (12)
  1. ZOLPIDEM TARTRATE [Suspect]
     Indication: INSOMNIA
     Dosage: 5 MG 1 TAB AT BEDTIME PO
     Route: 048
     Dates: start: 20100910, end: 20100920
  2. LITHIUM [Concomitant]
  3. KALETRA [Concomitant]
  4. EPZICOM [Concomitant]
  5. PROLIXIN [Concomitant]
  6. COGENTIN [Concomitant]
  7. CLINDAMYCIN [Concomitant]
  8. LASIX [Concomitant]
  9. NIFEDIPINE [Concomitant]
  10. COLACE [Concomitant]
  11. ALBUTEROL INHALER [Concomitant]
  12. FERROUS SULFATE [Concomitant]

REACTIONS (4)
  - ANGIOEDEMA [None]
  - FACE OEDEMA [None]
  - PERIORBITAL OEDEMA [None]
  - SOMNOLENCE [None]
